FAERS Safety Report 7597967-X (Version None)
Quarter: 2011Q3

REPORT INFORMATION
  Report Type: 
  Country: None (occurrence: None)
  Receive Date: 20110708
  Receipt Date: 20110706
  Transmission Date: 20111222
  Serious: Yes (Life-Threatening)
  Sender: FDA-Public Use
  Company Number: PHHY2011GB59818

PATIENT
  Age: 85 Year
  Sex: Male
  Weight: 89 kg

DRUGS (11)
  1. AMLODIPINE [Concomitant]
  2. LANSOPRAZOLE [Concomitant]
  3. ALENDRONIC ACID [Suspect]
     Indication: OSTEOPOROSIS
     Dosage: 70 MG, QW
     Route: 048
     Dates: start: 20050210, end: 20110323
  4. CALCICHEW D3 [Concomitant]
  5. METHOTREXATE [Concomitant]
  6. ATENOLOL [Concomitant]
  7. PREDNISOLONE [Concomitant]
  8. FOLIC ACID [Concomitant]
  9. ACETAMINOPHEN AND CODEINE PHOSPHATE [Concomitant]
  10. HYDROXYCHLOROQUINE SULFATE [Concomitant]
  11. NAPROXEN [Concomitant]

REACTIONS (1)
  - OESOPHAGEAL CARCINOMA [None]
